FAERS Safety Report 9236493 (Version 1)
Quarter: 2013Q2

REPORT INFORMATION
  Report Type: Spontaneous
  Country: US (occurrence: US)
  Receive Date: 20130417
  Receipt Date: 20130417
  Transmission Date: 20140414
  Serious: Yes (Death)
  Sender: FDA-Public Use
  Company Number: US-ROCHE-1049919

PATIENT
  Sex: Male

DRUGS (2)
  1. RITUXAN [Suspect]
     Indication: NON-HODGKIN^S LYMPHOMA
     Route: 042
     Dates: start: 20111025
  2. RITUXAN [Suspect]
     Route: 042
     Dates: start: 20111121

REACTIONS (3)
  - Cardio-respiratory arrest [Fatal]
  - Hyperhidrosis [Fatal]
  - Palpitations [Fatal]
